FAERS Safety Report 22636233 (Version 1)
Quarter: 2023Q2

REPORT INFORMATION
  Report Type: Spontaneous
  Country: US (occurrence: None)
  Receive Date: 20230623
  Receipt Date: 20230623
  Transmission Date: 20230722
  Serious: No
  Sender: FDA-Public Use
  Company Number: US-Eisai Medical Research-EC-2023-141344

PATIENT
  Age: 80 Year
  Sex: Male
  Weight: 99.2 kg

DRUGS (5)
  1. LEQEMBI [Suspect]
     Active Substance: LECANEMAB-IRMB
     Indication: Dementia Alzheimer^s type
     Route: 042
     Dates: start: 20230526
  2. TYLENOL [Concomitant]
     Active Substance: ACETAMINOPHEN
     Indication: Prophylaxis
     Dosage: ONCE, DOSE UNKNOWN
     Route: 065
     Dates: start: 20230526, end: 20230526
  3. TYLENOL [Concomitant]
     Active Substance: ACETAMINOPHEN
     Dosage: ONCE, DOSE UNKNOWN
     Route: 065
     Dates: start: 20230526, end: 20230526
  4. BENADRYL [Concomitant]
     Active Substance: DIPHENHYDRAMINE HYDROCHLORIDE
     Indication: Prophylaxis
     Dosage: ONCE, DOSE UNKNOWN
     Route: 065
     Dates: start: 20230526, end: 20230526
  5. BENADRYL [Concomitant]
     Active Substance: DIPHENHYDRAMINE HYDROCHLORIDE
     Dosage: ONCE, DOSE UNKNOWN
     Route: 065
     Dates: start: 20230526, end: 20230526

REACTIONS (5)
  - Dizziness [Recovered/Resolved]
  - Asthenia [Recovered/Resolved]
  - Confusional state [Recovered/Resolved]
  - Feeling abnormal [Recovered/Resolved]
  - Somnolence [Unknown]

NARRATIVE: CASE EVENT DATE: 20230526
